FAERS Safety Report 19088303 (Version 2)
Quarter: 2021Q2

REPORT INFORMATION
  Report Type: Report from Study
  Country: NL (occurrence: NL)
  Receive Date: 20210402
  Receipt Date: 20210524
  Transmission Date: 20210717
  Serious: Yes (Other)
  Sender: FDA-Public Use
  Company Number: NL-B.I. PHARMACEUTICALS,INC./RIDGEFIELD-2021-BI-094338

PATIENT
  Age: 70 Year
  Sex: Male
  Weight: 106.8 kg

DRUGS (5)
  1. FUROSEMIDE. [Concomitant]
     Active Substance: FUROSEMIDE
     Indication: CARDIAC FAILURE
     Route: 048
     Dates: start: 20190704, end: 20210312
  2. LISINOPRIL. [Concomitant]
     Active Substance: LISINOPRIL
     Indication: HYPERTENSION
     Route: 048
     Dates: start: 20110607
  3. METOPROLOL. [Concomitant]
     Active Substance: METOPROLOL
     Indication: CARDIOVASCULAR DISORDER
     Route: 048
     Dates: start: 20140820
  4. EMPAGLIFLOZIN [Suspect]
     Active Substance: EMPAGLIFLOZIN
     Indication: CARDIAC FAILURE
     Route: 048
     Dates: start: 20180118, end: 20210215
  5. AMLODIPINE [Concomitant]
     Active Substance: AMLODIPINE BESYLATE
     Indication: HYPERTENSION
     Route: 048
     Dates: start: 20160421

REACTIONS (1)
  - Cardiac failure [Not Recovered/Not Resolved]

NARRATIVE: CASE EVENT DATE: 20210218
